FAERS Safety Report 16235915 (Version 2)
Quarter: 2019Q2

REPORT INFORMATION
  Report Type: Report from Study
  Country: None (occurrence: CA)
  Receive Date: 20190425
  Receipt Date: 20190426
  Transmission Date: 20190711
  Serious: Yes (Other)
  Sender: FDA-Public Use
  Company Number: CA-ABBVIE-14P-028-1226775-00

PATIENT
  Sex: Female
  Weight: 59.02 kg

DRUGS (2)
  1. HUMIRA [Suspect]
     Active Substance: ADALIMUMAB
     Indication: CROHN^S DISEASE
     Route: 058
     Dates: start: 20130320, end: 201305
  2. HUMIRA [Suspect]
     Active Substance: ADALIMUMAB
     Route: 058
     Dates: end: 20140409

REACTIONS (8)
  - Gastrointestinal obstruction [Recovering/Resolving]
  - Malaise [Recovered/Resolved]
  - Nerve injury [Recovering/Resolving]
  - Pain in extremity [Recovering/Resolving]
  - Abscess limb [Recovered/Resolved]
  - Burning sensation [Recovering/Resolving]
  - Abscess intestinal [Recovered/Resolved]
  - Weight decreased [Recovered/Resolved]
